FAERS Safety Report 5860021-9 (Version None)
Quarter: 2008Q3

REPORT INFORMATION
  Report Type: 
  Country: None (occurrence: None)
  Receive Date: 20080827
  Receipt Date: 20080815
  Transmission Date: 20090109
  Serious: Yes (Hospitalization, Disabling)
  Sender: FDA-Public Use
  Company Number: US-SANOFI-SYNTHELABO-A03200803262

PATIENT
  Sex: Female

DRUGS (1)
  1. AMBIEN CR [Suspect]
     Indication: DRUG USE FOR UNKNOWN INDICATION
     Dosage: HAD ONLY TAKEN TABLETS 4 TIMES BEFORE THE ACCIDENT
     Route: 048
     Dates: start: 20070413

REACTIONS (4)
  - FALL [None]
  - PARAPLEGIA [None]
  - SOMNAMBULISM [None]
  - SPINAL FRACTURE [None]
